FAERS Safety Report 23302803 (Version 1)
Quarter: 2023Q4

REPORT INFORMATION
  Report Type: Spontaneous
  Country: IN (occurrence: IN)
  Receive Date: 20231215
  Receipt Date: 20231215
  Transmission Date: 20240109
  Serious: Yes (Life-Threatening, Hospitalization, Other)
  Sender: FDA-Public Use
  Company Number: IN-MLMSERVICE-20231130-4699244-1

PATIENT
  Age: 75 Year
  Sex: Male

DRUGS (1)
  1. CLOPIDOGREL [Suspect]
     Active Substance: CLOPIDOGREL BISULFATE
     Indication: Anticoagulant therapy
     Dosage: UNKNOWN
     Route: 065

REACTIONS (4)
  - Hemiparesis [Recovering/Resolving]
  - Locked-in syndrome [Unknown]
  - Cerebral infarction [Unknown]
  - Subdural haematoma [Recovered/Resolved]
